FAERS Safety Report 20536887 (Version 1)
Quarter: 2022Q1

REPORT INFORMATION
  Report Type: Spontaneous
  Country: DE (occurrence: DE)
  Receive Date: 20220302
  Receipt Date: 20220302
  Transmission Date: 20220423
  Serious: Yes (Life-Threatening, Other)
  Sender: FDA-Public Use
  Company Number: None

PATIENT
  Age: 80 Year
  Sex: Male
  Weight: 65 kg

DRUGS (6)
  1. XARELTO [Suspect]
     Active Substance: RIVAROXABAN
     Indication: Atrial fibrillation
     Dosage: 20 MG, OM
     Route: 048
     Dates: start: 20160815
  2. XARELTO [Suspect]
     Active Substance: RIVAROXABAN
     Indication: Cardiac failure
  3. XARELTO [Suspect]
     Active Substance: RIVAROXABAN
     Indication: Anticoagulant therapy
  4. TORSEMIDE [Concomitant]
     Active Substance: TORSEMIDE
     Indication: Oedema
     Dosage: 0.5 DF, OM
     Dates: start: 2016
  5. ENTRESTO [Concomitant]
     Active Substance: SACUBITRIL\VALSARTAN
     Indication: Cardiac failure chronic
     Dosage: 2 DF, OM
     Dates: start: 2016
  6. BISOPROLOL [Concomitant]
     Active Substance: BISOPROLOL
     Dosage: 5 MG, QD
     Dates: start: 2016

REACTIONS (3)
  - Blepharitis [Recovering/Resolving]
  - Eyelid haematoma [Recovering/Resolving]
  - Eye haematoma [Recovering/Resolving]

NARRATIVE: CASE EVENT DATE: 20210929
